FAERS Safety Report 8227928-9 (Version None)
Quarter: 2012Q1

REPORT INFORMATION
  Report Type: 
  Country: None (occurrence: None)
  Receive Date: 20120322
  Receipt Date: 20120320
  Transmission Date: 20120608
  Serious: Yes (Death, Other)
  Sender: FDA-Public Use
  Company Number: PHHY2012GB024309

PATIENT
  Sex: Female
  Weight: 2.86 kg

DRUGS (1)
  1. SERTRALINE HYDROCHLORIDE [Suspect]
     Route: 064

REACTIONS (8)
  - MYOCARDIAL HAEMORRHAGE [None]
  - ASPHYXIA [None]
  - SKIN MACERATION [None]
  - NEONATAL ASPIRATION [None]
  - HYPOXIA [None]
  - FOETAL EXPOSURE DURING PREGNANCY [None]
  - STILLBIRTH [None]
  - PULMONARY HAEMORRHAGE [None]
